FAERS Safety Report 5339569-1 (Version None)
Quarter: 2007Q2

REPORT INFORMATION
  Report Type: 
  Country: None (occurrence: None)
  Receive Date: 20070523
  Receipt Date: 20070511
  Transmission Date: 20071010
  Serious: Yes (Hospitalization)
  Sender: FDA-Public Use
  Company Number: 2007320690

PATIENT
  Age: 80 Year
  Sex: Female
  Weight: 52.2 kg

DRUGS (2)
  1. ROGAINE [Suspect]
     Indication: ALOPECIA
     Dosage: A DROPPLER TWICE A DAY, TOPICAL
     Route: 061
     Dates: start: 20040101
  2. TOPRAL (SULTOPRIDE) [Concomitant]

REACTIONS (4)
  - DIZZINESS [None]
  - HEART RATE INCREASED [None]
  - HYPOTENSION [None]
  - REFUSAL OF TREATMENT BY PATIENT [None]
